FAERS Safety Report 12985680 (Version 2)
Quarter: 2017Q1

REPORT INFORMATION
  Report Type: Spontaneous
  Country: IT (occurrence: IT)
  Receive Date: 20161130
  Receipt Date: 20170104
  Transmission Date: 20170428
  Serious: Yes (Life-Threatening, Other)
  Sender: FDA-Public Use
  Company Number: IT-ACCORD-045888

PATIENT
  Age: 70 Year
  Sex: Female
  Weight: 74 kg

DRUGS (2)
  1. CISPLATIN ACCORD [Suspect]
     Active Substance: CISPLATIN
     Indication: PERITONEAL NEOPLASM
     Dosage: 1 MG/ML
     Route: 042
     Dates: start: 20161114
  2. ALIMTA [Concomitant]
     Active Substance: PEMETREXED DISODIUM
     Indication: PERITONEAL NEOPLASM
     Dosage: 500 MG
     Dates: start: 20161114, end: 20161114

REACTIONS (6)
  - Dyspnoea [Recovering/Resolving]
  - Paraesthesia oral [Recovered/Resolved]
  - Sense of oppression [Recovered/Resolved]
  - Hypoxia [Recovered/Resolved]
  - Cardiac arrest [Recovering/Resolving]
  - Off label use [Unknown]

NARRATIVE: CASE EVENT DATE: 20161213
